FAERS Safety Report 8440466-3 (Version None)
Quarter: 2012Q2

REPORT INFORMATION
  Report Type: 
  Country: None (occurrence: None)
  Receive Date: 20120323
  Receipt Date: 20110624
  Transmission Date: 20120825
  Serious: Yes (Hospitalization)
  Sender: FDA-Public Use
  Company Number: 163-21880-11063500

PATIENT
  Age: 70 Year
  Sex: Female
  Weight: 122.9248 kg

DRUGS (2)
  1. REVLIMID [Suspect]
     Indication: MULTIPLE MYELOMA
     Dosage: 10 MG, DAILY X 21 DAYS, 7 DAYS OFF, PO   10 MG, DAILY X 14 DAYS, 14 DAYS OFF, PO
     Route: 048
     Dates: start: 20110601
  2. REVLIMID [Suspect]
     Indication: MULTIPLE MYELOMA
     Dosage: 10 MG, DAILY X 21 DAYS, 7 DAYS OFF, PO   10 MG, DAILY X 14 DAYS, 14 DAYS OFF, PO
     Route: 048
     Dates: start: 20110301

REACTIONS (1)
  - FULL BLOOD COUNT DECREASED [None]
